FAERS Safety Report 20288966 (Version 11)
Quarter: 2023Q1

REPORT INFORMATION
  Report Type: Report from Study
  Country: US (occurrence: US)
  Receive Date: 20220104
  Receipt Date: 20230102
  Transmission Date: 20230417
  Serious: No
  Sender: FDA-Public Use
  Company Number: US-NOVARTISTESTPH-NVSC2022US000626

PATIENT
  Age: 46 Year
  Sex: Male

DRUGS (2)
  1. COSENTYX [Suspect]
     Active Substance: SECUKINUMAB
     Indication: Psoriasis
     Dosage: 300 MG
     Route: 065
     Dates: start: 20211220
  2. COSENTYX [Suspect]
     Active Substance: SECUKINUMAB
     Dosage: 300 MG, QMO
     Route: 058

REACTIONS (9)
  - Rash [Unknown]
  - Skin discolouration [Recovering/Resolving]
  - Pruritus [Not Recovered/Not Resolved]
  - Skin lesion [Recovering/Resolving]
  - Diarrhoea [Recovered/Resolved]
  - Injection site haemorrhage [Not Recovered/Not Resolved]
  - Device deployment issue [Unknown]
  - Product supply issue [Unknown]
  - Therapeutic product effect incomplete [Unknown]

NARRATIVE: CASE EVENT DATE: 20220103
